FAERS Safety Report 8779393 (Version 4)
Quarter: 2014Q1

REPORT INFORMATION
  Report Type: Report from Study
  Country: JP (occurrence: JP)
  Receive Date: 20120914
  Receipt Date: 20140312
  Transmission Date: 20141002
  Serious: Yes (Other)
  Sender: FDA-Public Use
  Company Number: JP-VERTEX PHARMACEUTICAL INC.-2012-020776

PATIENT
  Age: 63 Year
  Sex: Male

DRUGS (15)
  1. VX-950 (TELAPREVIR) [Suspect]
     Indication: CHRONIC HEPATITIS C
     Dosage: 2250 MG, QD
     Route: 048
     Dates: start: 20120703, end: 20120806
  2. VX-950 (TELAPREVIR) [Suspect]
     Dosage: 1500 MG, QD
     Route: 048
     Dates: start: 20120807, end: 20120924
  3. RIBAVIRIN [Suspect]
     Indication: CHRONIC HEPATITIS C
     Dosage: 600 MG, QD
     Route: 048
     Dates: start: 20120703, end: 20121217
  4. PEGINTERFERON ALFA-2B [Suspect]
     Indication: CHRONIC HEPATITIS C
     Dosage: 1.5 ?G/KG, QW
     Route: 058
     Dates: start: 20120703, end: 20120731
  5. PEGINTERFERON ALFA-2B [Suspect]
     Dosage: 1.2 ?G/KG, QW
     Route: 058
     Dates: start: 20120807, end: 20121211
  6. URSO [Concomitant]
     Dosage: 600 MG, QD
     Route: 048
  7. SELBEX [Concomitant]
     Dosage: 1.5 G, QD
     Route: 048
  8. OMEPRAL [Concomitant]
     Dosage: 10 MG, QD
     Route: 048
     Dates: start: 20120820
  9. NAPAGELN [Concomitant]
     Dosage: 1 DF, QD
     Route: 051
     Dates: start: 20120705
  10. NAPAGELN [Concomitant]
     Dosage: UNK UNK, PRN
     Route: 051
     Dates: end: 20120911
  11. LAMISIL [Concomitant]
     Dosage: UNK, PRN
     Route: 061
     Dates: start: 20121023
  12. LOXONIN [Concomitant]
     Dosage: 60 MG, PRN
     Route: 048
     Dates: start: 20121024, end: 20121030
  13. KLARICID [Concomitant]
     Dosage: 400 MG, QD
     Route: 048
     Dates: start: 20121024, end: 20121028
  14. PA [Concomitant]
     Dosage: 2 DF, QD
     Route: 048
     Dates: start: 20121024, end: 20121028
  15. KRACIE SHOSEIRYUTO EXTRACT FINE GRANULES [Concomitant]
     Dosage: 2 DF, QD
     Route: 048
     Dates: start: 20121024, end: 20121028

REACTIONS (2)
  - Rash [Recovering/Resolving]
  - Pruritus [Recovering/Resolving]
